FAERS Safety Report 20431575 (Version 1)
Quarter: 2022Q1

REPORT INFORMATION
  Report Type: Spontaneous
  Country: US (occurrence: US)
  Receive Date: 20220204
  Receipt Date: 20220204
  Transmission Date: 20220423
  Serious: Yes (Hospitalization, Other)
  Sender: FDA-Public Use
  Company Number: US-TOPROL-2022000025

PATIENT
  Age: 77 Year
  Sex: Female

DRUGS (2)
  1. METOPROLOL SUCCINATE [Suspect]
     Active Substance: METOPROLOL SUCCINATE
  2. ATORVASTATIN [Suspect]
     Active Substance: ATORVASTATIN

REACTIONS (6)
  - Dyspnoea [Unknown]
  - Tachycardia [Unknown]
  - Back pain [Unknown]
  - Haemothorax [Unknown]
  - Aortic dissection [Unknown]
  - Aortic aneurysm [Unknown]
